FAERS Safety Report 15115389 (Version 3)
Quarter: 2019Q1

REPORT INFORMATION
  Report Type: Report from Study
  Country: US (occurrence: US)
  Receive Date: 20180706
  Receipt Date: 20190115
  Transmission Date: 20190417
  Serious: Yes (Hospitalization)
  Sender: FDA-Public Use
  Company Number: US-TAKEDA-2018TUS021275

PATIENT
  Age: 25 Year
  Sex: Female

DRUGS (1)
  1. PONATINIB [Suspect]
     Active Substance: PONATINIB
     Indication: CHRONIC MYELOID LEUKAEMIA
     Dosage: 45 MG, QD
     Route: 048
     Dates: start: 20180220

REACTIONS (13)
  - Red blood cell count decreased [Unknown]
  - Myalgia [Unknown]
  - Drug ineffective [Unknown]
  - Nausea [Unknown]
  - Abdominal pain [Unknown]
  - Hyperleukocytosis [Unknown]
  - Platelet count decreased [Unknown]
  - Urinary tract infection [Unknown]
  - Hypersensitivity [Unknown]
  - Road traffic accident [Unknown]
  - Haematoma [Unknown]
  - Headache [Unknown]
  - Neutropenia [Recovering/Resolving]

NARRATIVE: CASE EVENT DATE: 201803
